FAERS Safety Report 10220599 (Version 1)
Quarter: 2014Q2

REPORT INFORMATION
  Report Type: Spontaneous
  Country: US (occurrence: None)
  Receive Date: 20140605
  Receipt Date: 20140605
  Transmission Date: 20141212
  Serious: Yes (Disabling)
  Sender: FDA-Public Use
  Company Number: None

PATIENT
  Age: 19 Year
  Sex: Male
  Weight: 79.38 kg

DRUGS (2)
  1. CIPROFLOXACIN HCL [Suspect]
     Indication: BACTERIAL INFECTION
     Dosage: 1 PILL, TWICE DAILY, TAKEN BY MOUTH
     Route: 048
     Dates: start: 20140521, end: 20140523
  2. CIPROFLOXACIN HCL [Suspect]
     Indication: DIARRHOEA INFECTIOUS
     Dosage: 1 PILL, TWICE DAILY, TAKEN BY MOUTH
     Route: 048
     Dates: start: 20140521, end: 20140523

REACTIONS (15)
  - Hallucination [None]
  - Paranoia [None]
  - Insomnia [None]
  - Vision blurred [None]
  - Hypoaesthesia [None]
  - Hypoaesthesia [None]
  - Paraesthesia [None]
  - Anxiety [None]
  - Muscle twitching [None]
  - Tic [None]
  - Speech disorder [None]
  - Hyperacusis [None]
  - Confusional state [None]
  - Arthralgia [None]
  - Palpitations [None]
